FAERS Safety Report 9795301 (Version 2)
Quarter: 2014Q1

REPORT INFORMATION
  Report Type: Report from Study
  Country: DE (occurrence: DE)
  Receive Date: 20140103
  Receipt Date: 20140206
  Transmission Date: 20141002
  Serious: Yes (Hospitalization)
  Sender: FDA-Public Use
  Company Number: DE-BRISTOL-MYERS SQUIBB COMPANY-19940584

PATIENT
  Age: 73 Year
  Sex: Female

DRUGS (3)
  1. ABATACEPT SUBQ INJECTION 125MG/ML [Suspect]
     Dosage: DOSE:750 MG
     Route: 058
     Dates: start: 20120801, end: 201302
  2. CALCILAC [Concomitant]
     Dosage: 1DF:2X500 MG PLUS 2X400 I.U./DAILY
  3. PREDNISOLONE [Concomitant]

REACTIONS (1)
  - Pulmonary fibrosis [Unknown]
